FAERS Safety Report 9233568 (Version 2)
Quarter: 2013Q2

REPORT INFORMATION
  Report Type: Spontaneous
  Country: US (occurrence: US)
  Receive Date: 20130416
  Receipt Date: 20130416
  Transmission Date: 20140414
  Serious: No
  Sender: FDA-Public Use
  Company Number: US-BANPHARM-20120330

PATIENT
  Sex: Female

DRUGS (2)
  1. ALEVE LIQUID GELS 220 MG [Suspect]
     Route: 048
  2. ALEVE? CAPLETS - ANY TYPE [Suspect]
     Route: 048

REACTIONS (2)
  - Aphthous stomatitis [Unknown]
  - Drug ineffective [Unknown]
